FAERS Safety Report 9458682 (Version 2)
Quarter: 2013Q3

REPORT INFORMATION
  Report Type: Spontaneous
  Country: US (occurrence: US)
  Receive Date: 20130814
  Receipt Date: 20130920
  Transmission Date: 20140515
  Serious: No
  Sender: FDA-Public Use
  Company Number: US-009507513-1308USA006291

PATIENT
  Sex: Female
  Weight: 53.97 kg

DRUGS (11)
  1. MIRALAX [Suspect]
     Indication: GASTROINTESTINAL DISORDER
     Dosage: 17 G, BID
     Route: 048
     Dates: start: 2001
  2. INSULIN [Concomitant]
     Indication: DIABETES MELLITUS
     Dosage: UNK, UNKNOWN
  3. OXYCODONE [Concomitant]
     Indication: PAIN
     Dosage: UNK, UNKNOWN
  4. TIZANIDINE HYDROCHLORIDE [Concomitant]
     Indication: PAIN
     Dosage: UNK, UNKNOWN
  5. ZOLPIDEM TARTRATE [Concomitant]
     Indication: SLEEP DISORDER THERAPY
     Dosage: UNK, UNKNOWN
  6. PROMETHAZINE [Concomitant]
     Indication: HYPERCHLORHYDRIA
     Dosage: UNK, UNKNOWN
  7. SUCRALFATE [Concomitant]
     Indication: HYPERCHLORHYDRIA
     Dosage: UNK, UNKNOWN
  8. OMEPRAZOLE [Concomitant]
     Indication: DYSPEPSIA
     Dosage: UNK, UNKNOWN
  9. TAMSULOSIN HYDROCHLORIDE [Concomitant]
     Indication: PRODUCT USED FOR UNKNOWN INDICATION
     Dosage: UNK, UNKNOWN
  10. SLIPPERY ELM [Concomitant]
     Indication: PRODUCT USED FOR UNKNOWN INDICATION
     Dosage: UNK, UNKNOWN
  11. CALCIUM (UNSPECIFIED) [Concomitant]
     Indication: PRODUCT USED FOR UNKNOWN INDICATION
     Dosage: UNK, UNKNOWN

REACTIONS (6)
  - Abnormal faeces [Unknown]
  - Overdose [Unknown]
  - Incorrect drug administration duration [Unknown]
  - Inappropriate schedule of drug administration [Unknown]
  - Product taste abnormal [Unknown]
  - Product odour abnormal [Unknown]
